FAERS Safety Report 5887391-X (Version None)
Quarter: 2008Q3

REPORT INFORMATION
  Report Type: 
  Country: None (occurrence: None)
  Receive Date: 20080918
  Receipt Date: 20080911
  Transmission Date: 20090109
  Serious: Yes (Death, Hospitalization)
  Sender: FDA-Public Use
  Company Number: US-CELGENEUS-163-21880-08090027

PATIENT
  Sex: Male
  Weight: 59 kg

DRUGS (1)
  1. REVLIMID [Suspect]
     Indication: MYCOSIS FUNGOIDES
     Route: 048
     Dates: start: 20080616, end: 20080831

REACTIONS (3)
  - MENTAL STATUS CHANGES [None]
  - PERIPHERAL VASCULAR DISORDER [None]
  - SKIN ULCER [None]
